FAERS Safety Report 10659360 (Version 2)
Quarter: 2015Q1

REPORT INFORMATION
  Report Type: Spontaneous
  Country: US (occurrence: US)
  Receive Date: 20141217
  Receipt Date: 20150219
  Transmission Date: 20150720
  Serious: Yes (Hospitalization, Other)
  Sender: FDA-Public Use
  Company Number: US-JNJFOC-20141210316

PATIENT
  Age: 33 Year
  Sex: Male
  Weight: 70.31 kg

DRUGS (1)
  1. TYLENOL COLD AND FLU SEVERE [Suspect]
     Active Substance: ACETAMINOPHEN\DEXTROMETHORPHAN HYDROBROMIDE\GUAIFENESIN\PHENYLEPHRINE HYDROCHLORIDE
     Indication: INFLUENZA
     Dosage: APPROX 2,600MG-3900MG EVERY 4 HOURS PER DAY
     Route: 048
     Dates: start: 20130203, end: 20130206

REACTIONS (5)
  - Toxicity to various agents [Unknown]
  - Hepatitis toxic [Recovered/Resolved]
  - Acute hepatic failure [Recovered/Resolved]
  - Acute kidney injury [Recovered/Resolved]
  - Hepatic encephalopathy [Recovered/Resolved]

NARRATIVE: CASE EVENT DATE: 201302
